FAERS Safety Report 4480253-4 (Version None)
Quarter: 2004Q3

REPORT INFORMATION
  Report Type: 
  Country: None (occurrence: None)
  Receive Date: 20040923
  Receipt Date: 20040525
  Transmission Date: 20050211
  Serious: No
  Sender: FDA-Public Use
  Company Number: USA040463715

PATIENT
  Age: 59 Year
  Sex: Female

DRUGS (5)
  1. FORTEO [Suspect]
     Indication: OSTEOPOROSIS
     Dosage: 20 UG DAY
     Dates: start: 20040326, end: 20040330
  2. ACETAMINOPHEN AND HYDROCODONE BITARTRATE [Concomitant]
  3. ATIVAN [Concomitant]
  4. CORTISONE [Concomitant]
  5. ZANTAC [Concomitant]

REACTIONS (7)
  - BALANCE DISORDER [None]
  - DIZZINESS [None]
  - HEART RATE INCREASED [None]
  - LETHARGY [None]
  - NAUSEA [None]
  - PALPITATIONS [None]
  - TREMOR [None]
